FAERS Safety Report 7765647-3 (Version None)
Quarter: 2011Q3

REPORT INFORMATION
  Report Type: 
  Country: None (occurrence: None)
  Receive Date: 20110921
  Receipt Date: 20110616
  Transmission Date: 20111222
  Serious: Yes (Other)
  Sender: FDA-Public Use
  Company Number: PHHY2011JP52333

PATIENT
  Age: 47 Year
  Sex: Male

DRUGS (9)
  1. CLOZARIL [Suspect]
     Dosage: 100 MG,
     Route: 048
     Dates: start: 20110524, end: 20110525
  2. CLOZARIL [Suspect]
     Indication: SCHIZOPHRENIA
     Dosage: 125 MG,
     Route: 048
     Dates: start: 20110517, end: 20110517
  3. CLOZARIL [Suspect]
     Dosage: 125 MG,
     Route: 048
     Dates: start: 20110526, end: 20110608
  4. CLOZARIL [Suspect]
     Dosage: 200 MG,
     Route: 048
     Dates: start: 20110611, end: 20110615
  5. CLOZARIL [Suspect]
     Dosage: 100 MG,
     Route: 048
     Dates: start: 20110616, end: 20110616
  6. CLOZARIL [Suspect]
     Dosage: 150 MG,
     Route: 048
     Dates: start: 20110609, end: 20110609
  7. CLOZARIL [Suspect]
     Dosage: 50 MG,
     Route: 048
     Dates: start: 20110519, end: 20110523
  8. CLOZARIL [Suspect]
     Dosage: 25 MG,
     Route: 048
     Dates: start: 20110518, end: 20110518
  9. CLOZARIL [Suspect]
     Dosage: 175 MG,
     Route: 048
     Dates: start: 20110610, end: 20110610

REACTIONS (4)
  - ALANINE AMINOTRANSFERASE INCREASED [None]
  - ASPARTATE AMINOTRANSFERASE INCREASED [None]
  - HEPATIC FUNCTION ABNORMAL [None]
  - GAMMA-GLUTAMYLTRANSFERASE INCREASED [None]
